FAERS Safety Report 11849722 (Version 1)
Quarter: 2015Q4

REPORT INFORMATION
  Report Type: Spontaneous
  Country: CA (occurrence: CA)
  Receive Date: 20151218
  Receipt Date: 20151218
  Transmission Date: 20160305
  Serious: Yes (Hospitalization, Other)
  Sender: FDA-Public Use
  Company Number: CA-TEVA-618960ACC

PATIENT
  Age: 54 Year
  Sex: Female
  Weight: 78 kg

DRUGS (10)
  1. NORVASC [Concomitant]
     Active Substance: AMLODIPINE BESYLATE
  2. VENTOLIN [Concomitant]
     Active Substance: ALBUTEROL SULFATE
  3. ONGLYZA [Suspect]
     Active Substance: SAXAGLIPTIN HYDROCHLORIDE
     Indication: TYPE 2 DIABETES MELLITUS
     Dosage: 5 MILLIGRAM DAILY;
     Route: 065
  4. LEVOTHYROXINE. [Concomitant]
     Active Substance: LEVOTHYROXINE
  5. PANTOLOC [Concomitant]
     Active Substance: PANTOPRAZOLE SODIUM
  6. METFORMIN [Suspect]
     Active Substance: METFORMIN HYDROCHLORIDE
     Indication: PRODUCT USED FOR UNKNOWN INDICATION
     Dosage: 2000 MILLIGRAM DAILY;
     Route: 065
  7. COVERSYL [Concomitant]
     Active Substance: PERINDOPRIL
  8. LANTUS [Concomitant]
     Active Substance: INSULIN GLARGINE
     Route: 058
  9. ADVAIR HFA [Concomitant]
     Active Substance: FLUTICASONE PROPIONATE\SALMETEROL XINAFOATE
  10. ATARAX SYRUP 2MG/ML [Concomitant]

REACTIONS (4)
  - Hepatic enzyme increased [Recovered/Resolved]
  - Hepatomegaly [Recovered/Resolved]
  - Pancreatic enzymes increased [Recovered/Resolved]
  - Pancreatitis [Recovered/Resolved]
